FAERS Safety Report 26137640 (Version 1)
Quarter: 2025Q4

REPORT INFORMATION
  Report Type: Spontaneous
  Country: US (occurrence: US)
  Receive Date: 20251209
  Receipt Date: 20251209
  Transmission Date: 20260118
  Serious: No
  Sender: BIOGEN
  Company Number: US-BIOGEN-2093682

PATIENT
  Sex: Male

DRUGS (1)
  1. PLEGRIDY [Suspect]
     Active Substance: PEGINTERFERON BETA-1A
     Indication: Product used for unknown indication
     Dosage: EXPIRY DATE:  30-JUN-2027

REACTIONS (4)
  - Product leakage [Unknown]
  - Device delivery system issue [Unknown]
  - Device deployment issue [Unknown]
  - Device malfunction [Unknown]
